FAERS Safety Report 10552621 (Version 5)
Quarter: 2018Q3

REPORT INFORMATION
  Report Type: Report from Study
  Country: US (occurrence: US)
  Receive Date: 20141029
  Receipt Date: 20180710
  Transmission Date: 20181010
  Serious: Yes (Other)
  Sender: FDA-Public Use
  Company Number: US-SA-2014SA114182

PATIENT
  Age: 55 Year
  Sex: Female

DRUGS (2)
  1. TERIFLUNOMIDE [Suspect]
     Active Substance: TERIFLUNOMIDE
     Dosage: 14 UNK
     Route: 048
     Dates: start: 20161130
  2. TERIFLUNOMIDE [Suspect]
     Active Substance: TERIFLUNOMIDE
     Indication: MULTIPLE SCLEROSIS
     Dosage: 14 MG,QD
     Route: 048
     Dates: start: 20140501, end: 201412

REACTIONS (7)
  - Pruritus [Unknown]
  - Memory impairment [Unknown]
  - Alopecia [Unknown]
  - Pilonidal cyst [Unknown]
  - Cyst [Unknown]
  - Liver function test increased [Unknown]
  - Thyroid mass [Unknown]

NARRATIVE: CASE EVENT DATE: 201410
